FAERS Safety Report 24745208 (Version 3)
Quarter: 2025Q1

REPORT INFORMATION
  Report Type: Spontaneous
  Country: JP (occurrence: JP)
  Receive Date: 20241217
  Receipt Date: 20250323
  Transmission Date: 20250409
  Serious: Yes (Life-Threatening, Hospitalization)
  Sender: NOVARTIS
  Company Number: JP-002147023-NVSJ2024JP014603

PATIENT

DRUGS (4)
  1. LUTATHERA [Suspect]
     Active Substance: LUTETIUM OXODOTREOTIDE LU-177
     Indication: Pancreatic neuroendocrine tumour
     Route: 042
     Dates: start: 20241128, end: 20241128
  2. ARGININE\LYSINE [Suspect]
     Active Substance: ARGININE\LYSINE
     Indication: Pancreatic neuroendocrine tumour
     Route: 042
     Dates: start: 20241128, end: 20241128
  3. SANDOSTATIN [Concomitant]
     Active Substance: OCTREOTIDE ACETATE
     Indication: Vipoma
     Route: 058
  4. SANDOSTATIN LAR DEPOT [Concomitant]
     Active Substance: OCTREOTIDE ACETATE
     Indication: Vipoma
     Route: 030

REACTIONS (7)
  - Diarrhoea [Recovered/Resolved]
  - Tumour lysis syndrome [Recovering/Resolving]
  - Gastrointestinal disorder [Unknown]
  - General physical health deterioration [Unknown]
  - Renal failure [Recovering/Resolving]
  - Oedema peripheral [Unknown]
  - Pharmacophobia [Unknown]
